FAERS Safety Report 10470786 (Version 1)
Quarter: 2014Q3

REPORT INFORMATION
  Report Type: Spontaneous
  Country: JP (occurrence: JP)
  Receive Date: 20140923
  Receipt Date: 20140923
  Transmission Date: 20150326
  Serious: Yes (Hospitalization)
  Sender: FDA-Public Use
  Company Number: JP-GLAXOSMITHKLINE-B1032755A

PATIENT
  Age: 31 Year
  Sex: Male

DRUGS (2)
  1. ZYPREXA [Concomitant]
     Active Substance: OLANZAPINE
     Route: 048
     Dates: end: 20130819
  2. LAMICTAL [Suspect]
     Active Substance: LAMOTRIGINE
     Indication: BIPOLAR DISORDER
     Dosage: 50MG PER DAY
     Route: 048
     Dates: start: 201307, end: 20130819

REACTIONS (10)
  - Pyrexia [Recovered/Resolved]
  - Tongue coated [Recovered/Resolved]
  - Hepatic function abnormal [Recovered/Resolved]
  - Rash generalised [Recovered/Resolved]
  - Conjunctival hyperaemia [Recovered/Resolved]
  - Rash papular [Recovered/Resolved]
  - Stevens-Johnson syndrome [Recovered/Resolved]
  - Oral mucosa erosion [Recovered/Resolved]
  - Pruritus generalised [Recovered/Resolved]
  - Mucous membrane disorder [Recovered/Resolved]

NARRATIVE: CASE EVENT DATE: 20130816
